FAERS Safety Report 6710987-X (Version None)
Quarter: 2010Q2

REPORT INFORMATION
  Report Type: 
  Country: None (occurrence: None)
  Receive Date: 20100505
  Receipt Date: 20100428
  Transmission Date: 20101027
  Serious: Yes (Death)
  Sender: FDA-Public Use
  Company Number: GB-TEVA-232948ISR

PATIENT
  Age: 49 Year
  Sex: Male
  Weight: 41 kg

DRUGS (3)
  1. VALPROIC ACID [Suspect]
  2. CLOZAPINE [Suspect]
     Route: 048
     Dates: start: 20040720, end: 20090421
  3. CLOZAPINE [Suspect]
     Dates: start: 19940525, end: 20040719

REACTIONS (4)
  - BRONCHITIS [None]
  - EPILEPSY [None]
  - HYPOTHYROIDISM [None]
  - SUDDEN DEATH [None]
